FAERS Safety Report 4443788-6 (Version None)
Quarter: 2004Q3

REPORT INFORMATION
  Report Type: 
  Country: None (occurrence: None)
  Receive Date: 20040729
  Receipt Date: 20040223
  Transmission Date: 20050211
  Serious: Yes (Death)
  Sender: FDA-Public Use
  Company Number: USA-2004-0013295

PATIENT
  Age: 40 Year
  Sex: Female

DRUGS (9)
  1. MORPHINE SULFATE [Suspect]
  2. HYDROCODONE BITARTRATE [Suspect]
  3. DIAZEPAM [Suspect]
  4. CYCLOBENZAPRINE HCL [Suspect]
  5. CARISOPRODOL [Suspect]
  6. DIPHENHYDRAMINE HCL [Suspect]
  7. MEPROBAMATE [Suspect]
  8. ACETAMINOPHEN [Suspect]
  9. CAFFEINE (CAFFEINE) [Suspect]

REACTIONS (2)
  - ACCIDENTAL OVERDOSE [None]
  - MULTIPLE DRUG OVERDOSE [None]
